FAERS Safety Report 24583605 (Version 1)
Quarter: 2024Q4

REPORT INFORMATION
  Report Type: Spontaneous
  Country: CN (occurrence: CN)
  Receive Date: 20241106
  Receipt Date: 20241106
  Transmission Date: 20250114
  Serious: Yes (Hospitalization, Other)
  Sender: JOHNSON AND JOHNSON
  Company Number: CN-KENVUE-20241033257

PATIENT
  Age: 71 Year
  Sex: Female
  Weight: 45 kg

DRUGS (6)
  1. IMODIUM [Suspect]
     Active Substance: LOPERAMIDE HYDROCHLORIDE
     Indication: Diarrhoea
     Dosage: 2 MILLIGRAM, ONCE A DAY
     Route: 048
     Dates: start: 20241011, end: 20241012
  2. GLUTAMINE\SODIUM GUALENATE MONOHYDRATE [Suspect]
     Active Substance: GLUTAMINE\SODIUM GUALENATE MONOHYDRATE
     Indication: Diarrhoea
     Dosage: 3 DOSAGE FORM, THRICE A DAY
     Route: 048
     Dates: start: 20241011, end: 20241012
  3. HERBALS [Suspect]
     Active Substance: HERBALS
     Indication: Coronary artery disease
     Dosage: 2 MILLIGRAM, THRICE A DAY
     Route: 048
     Dates: start: 20241011, end: 20241012
  4. HERBALS [Suspect]
     Active Substance: HERBALS
     Indication: Arrhythmia
  5. METOPROLOL TARTRATE [Suspect]
     Active Substance: METOPROLOL TARTRATE
     Indication: Arrhythmia
     Dosage: 12.5 MILLIGRAM, TWICE A DAY
     Route: 048
     Dates: start: 20241011, end: 20241012
  6. METOPROLOL TARTRATE [Suspect]
     Active Substance: METOPROLOL TARTRATE
     Indication: Coronary artery disease

REACTIONS (2)
  - Erythema multiforme [Recovering/Resolving]
  - Off label use [Unknown]

NARRATIVE: CASE EVENT DATE: 20241011
